FAERS Safety Report 12707176 (Version 1)
Quarter: 2016Q3

REPORT INFORMATION
  Report Type: Other
  Country: US (occurrence: US)
  Receive Date: 20160901
  Receipt Date: 20160901
  Transmission Date: 20161109
  Serious: Yes (Hospitalization)
  Sender: FDA-Public Use
  Company Number: US-B. BRAUN MEDICAL INC.-1056938

PATIENT
  Age: 78 Year
  Sex: Female

DRUGS (1)
  1. MEROPENEM FOR INJECTION USP AND SODIUM CHLORIDE INJECTION USP IN THE [Suspect]
     Active Substance: MEROPENEM\SODIUM CHLORIDE
     Indication: PSEUDOMONAS INFECTION
     Route: 042

REACTIONS (1)
  - Delirium [None]
